FAERS Safety Report 7281064-7 (Version None)
Quarter: 2011Q1

REPORT INFORMATION
  Report Type: 
  Country: None (occurrence: None)
  Receive Date: 20110208
  Receipt Date: 20110128
  Transmission Date: 20110831
  Serious: Yes (Hospitalization, Other)
  Sender: FDA-Public Use
  Company Number: US-MERCK-1008USA04174

PATIENT
  Age: 48 Year
  Sex: Female

DRUGS (2)
  1. FOSAMAX [Suspect]
     Indication: OSTEOPOROSIS
     Route: 048
     Dates: start: 20071101, end: 20080101
  2. ALENDRONATE SODIUM [Suspect]
     Route: 048
     Dates: start: 20080301

REACTIONS (16)
  - OSTEONECROSIS OF JAW [None]
  - TOOTH DISORDER [None]
  - ANGIOPATHY [None]
  - PERIPHERAL VASCULAR DISORDER [None]
  - IMPAIRED HEALING [None]
  - PERIODONTITIS [None]
  - ROTATOR CUFF SYNDROME [None]
  - DENTAL CARIES [None]
  - FIBROSIS [None]
  - DENTAL NECROSIS [None]
  - CHRONIC OBSTRUCTIVE PULMONARY DISEASE [None]
  - BONE DENSITY DECREASED [None]
  - ARTHRALGIA [None]
  - POST PROCEDURAL INFECTION [None]
  - ADVERSE DRUG REACTION [None]
  - OSTEOARTHRITIS [None]
